FAERS Safety Report 6018876-3 (Version None)
Quarter: 2008Q4

REPORT INFORMATION
  Report Type: 
  Country: None (occurrence: None)
  Receive Date: 20081224
  Receipt Date: 20081021
  Transmission Date: 20090506
  Serious: Yes (Hospitalization)
  Sender: FDA-Public Use
  Company Number: JP-CELGENEUS-AZAJP200800325

PATIENT
  Sex: Male

DRUGS (29)
  1. VIDAZA [Suspect]
     Indication: MYELODYSPLASTIC SYNDROME
     Route: 058
     Dates: start: 20080805, end: 20080811
  2. WATER FOR INJECTION [Concomitant]
     Indication: MYELODYSPLASTIC SYNDROME
     Route: 058
     Dates: start: 20080805, end: 20080811
  3. VORICONAZOLE [Concomitant]
     Route: 048
     Dates: start: 20080730, end: 20080825
  4. VORICONAZOLE [Concomitant]
     Route: 048
     Dates: start: 20080910
  5. VORICONAZOLE [Concomitant]
     Route: 048
     Dates: start: 20080911, end: 20080916
  6. BROTIZOLAM [Concomitant]
     Indication: INSOMNIA
     Route: 048
     Dates: start: 20080407, end: 20080823
  7. LEVOFLOXACIN [Concomitant]
     Indication: INFECTION PROPHYLAXIS
     Route: 048
     Dates: start: 20080804, end: 20080820
  8. LEVOFLOXACIN [Concomitant]
     Indication: SCLERITIS
     Dates: start: 20080818, end: 20080818
  9. LEVOFLOXACIN [Concomitant]
     Route: 048
     Dates: start: 20080922
  10. RAMOSETRON HYDROCHLORIDE [Concomitant]
     Route: 048
     Dates: start: 20080805, end: 20080811
  11. HEPARIN [Concomitant]
     Dates: start: 20080809, end: 20080822
  12. HYDROCORTISONE [Concomitant]
     Indication: SEBORRHOEIC DERMATITIS
     Dates: start: 20080811, end: 20080822
  13. KETOCONAZOLE [Concomitant]
     Indication: SEBORRHOEIC DERMATITIS
     Dates: start: 20080811, end: 20080822
  14. BECLOMETHASONE DIPROPIONATE [Concomitant]
     Indication: XERODERMA
     Dates: start: 20080811, end: 20080822
  15. MAGNESIUM OXIDE [Concomitant]
     Indication: CONSTIPATION
     Route: 048
     Dates: start: 20080813, end: 20080816
  16. BISACODYL [Concomitant]
     Indication: CONSTIPATION
     Route: 054
     Dates: start: 20080814, end: 20080814
  17. SENNOSIDE [Concomitant]
     Indication: CONSTIPATION
     Route: 048
     Dates: start: 20080814, end: 20080814
  18. FLUOROMETHOLONE [Concomitant]
     Indication: SCLERITIS
     Dates: start: 20080818, end: 20080825
  19. ETIZOLAM [Concomitant]
     Indication: INSOMNIA
     Route: 048
     Dates: start: 20080821, end: 20080827
  20. POVIDONE IODINE [Concomitant]
     Dates: start: 20080823
  21. FLUNITRAZEPAM [Concomitant]
     Indication: INSOMNIA
     Route: 048
     Dates: start: 20080824
  22. FLUNITRAZEPAM [Concomitant]
     Route: 048
     Dates: start: 20080825
  23. FLUNITRAZEPAM [Concomitant]
     Route: 048
     Dates: start: 20080826, end: 20080829
  24. FRADIOMYCIN SULFATE [Concomitant]
     Indication: SCLERITIS
     Dates: start: 20080825
  25. BETAMETHASONE SODIUM PHOSPHATE [Concomitant]
     Indication: SCLERITIS
     Dates: start: 20080825
  26. TROPICAMIDE [Concomitant]
     Indication: SCLERITIS
     Dates: start: 20080825
  27. ESTAZOLAM [Concomitant]
     Indication: INSOMNIA
     Route: 048
     Dates: start: 20080829, end: 20080919
  28. POTASSIUM CHLORIDE [Concomitant]
     Route: 048
     Dates: start: 20080902, end: 20080921
  29. HYDROXYZINE HYDROCHLORIDE [Concomitant]
     Indication: INSOMNIA
     Route: 051
     Dates: start: 20080916

REACTIONS (2)
  - PNEUMONIA FUNGAL [None]
  - SEPSIS [None]
